FAERS Safety Report 19084608 (Version 1)
Quarter: 2021Q2

REPORT INFORMATION
  Report Type: Spontaneous
  Country: US (occurrence: US)
  Receive Date: 20210401
  Receipt Date: 20210401
  Transmission Date: 20210717
  Serious: No
  Sender: FDA-Public Use
  Company Number: US-IBSA PHARMA-2018-IBS-00768

PATIENT
  Age: 63 Year
  Weight: 68 kg

DRUGS (2)
  1. FLECTOR [Suspect]
     Active Substance: DICLOFENAC EPOLAMINE
     Indication: PAIN
     Dosage: 1 DF,AS NEEDED
     Route: 061
  2. FLECTOR [Suspect]
     Active Substance: DICLOFENAC EPOLAMINE
     Indication: BACK INJURY

REACTIONS (4)
  - Product dispensing error [Unknown]
  - Intentional product use issue [Unknown]
  - Product prescribing error [Unknown]
  - Hypokinesia [Unknown]
